FAERS Safety Report 4381987-2 (Version None)
Quarter: 2004Q2

REPORT INFORMATION
  Report Type: 
  Country: None (occurrence: None)
  Receive Date: 20040615
  Receipt Date: 20040602
  Transmission Date: 20050107
  Serious: Yes (Other)
  Sender: FDA-Public Use
  Company Number: TUK2004A00063

PATIENT
  Age: 75 Year
  Sex: Female

DRUGS (2)
  1. ACTOS [Suspect]
     Indication: DIABETES MELLITUS
     Dosage: 15 MG, ORAL; DAYS
     Route: 048
     Dates: start: 20040305, end: 20040511
  2. GLICLAZIDE          (GLICLAZIDE) [Concomitant]

REACTIONS (2)
  - ABDOMINAL DISTENSION [None]
  - ARTHRALGIA [None]
